FAERS Safety Report 4805889-X (Version None)
Quarter: 2005Q4

REPORT INFORMATION
  Report Type: 
  Country: None (occurrence: None)
  Receive Date: 20051019
  Receipt Date: 20051010
  Transmission Date: 20060501
  Serious: Yes (Hospitalization)
  Sender: FDA-Public Use
  Company Number: US-2005-017782

PATIENT
  Age: 75 Year
  Sex: Female
  Weight: 45.4 kg

DRUGS (1)
  1. BETASERON(INTERFERON BETA - 1B) INJECTION, 250UG [Suspect]
     Indication: MULTIPLE SCLEROSIS
     Dosage: 9 MIU, EVERY 2D, SUBCUTANEOUS
     Route: 058
     Dates: start: 20000811

REACTIONS (2)
  - CHOLECYSTECTOMY [None]
  - GASTROINTESTINAL DISORDER [None]
